FAERS Safety Report 10262958 (Version 2)
Quarter: 2014Q2

REPORT INFORMATION
  Report Type: Report from Study
  Country: US (occurrence: US)
  Receive Date: 20140626
  Receipt Date: 20140626
  Transmission Date: 20141212
  Serious: Yes (Death)
  Sender: FDA-Public Use
  Company Number: US-MYLANLABS-2013S1024018

PATIENT
  Age: 64 Year
  Sex: Female

DRUGS (6)
  1. CLOZAPINE TABLETS [Suspect]
     Indication: ABNORMAL BEHAVIOUR
     Route: 048
     Dates: start: 20130609, end: 20130812
  2. CLOZAPINE TABLETS [Suspect]
     Indication: OFF LABEL USE
     Route: 048
     Dates: start: 20130609, end: 20130812
  3. RISPERIDONE [Concomitant]
  4. DEPAKOTE [Concomitant]
  5. HALOPERIDOL [Concomitant]
  6. KEPPRA [Concomitant]

REACTIONS (1)
  - Death [Fatal]
